FAERS Safety Report 13903950 (Version 1)
Quarter: 2017Q3

REPORT INFORMATION
  Report Type: Spontaneous
  Country: FR (occurrence: FR)
  Receive Date: 20170824
  Receipt Date: 20170824
  Transmission Date: 20171127
  Serious: Yes (Hospitalization, Other)
  Sender: FDA-Public Use
  Company Number: FR-MYLANLABS-2017M1052074

PATIENT

DRUGS (13)
  1. MABTHERA [Concomitant]
     Active Substance: RITUXIMAB
     Indication: HIGH GRADE B-CELL LYMPHOMA BURKITT-LIKE LYMPHOMA RECURRENT
     Dosage: 750 MG/M2, ONCE
     Route: 042
     Dates: start: 20170517, end: 20170517
  2. ETOPOSIDE. [Concomitant]
     Active Substance: ETOPOSIDE
     Indication: HIGH GRADE B-CELL LYMPHOMA BURKITT-LIKE LYMPHOMA RECURRENT
     Dosage: 100 MG/M2, ONCE (DAY 2)
     Route: 042
     Dates: start: 20170518, end: 20170518
  3. BACTRIM [Concomitant]
     Active Substance: SULFAMETHOXAZOLE\TRIMETHOPRIM
     Indication: PRODUCT USED FOR UNKNOWN INDICATION
     Dosage: UNK
  4. FOLINORAL [Concomitant]
     Active Substance: LEUCOVORIN CALCIUM
     Indication: PRODUCT USED FOR UNKNOWN INDICATION
     Dosage: UNK
  5. CORDARONE [Concomitant]
     Active Substance: AMIODARONE HYDROCHLORIDE
     Indication: PRODUCT USED FOR UNKNOWN INDICATION
     Dosage: UNK
  6. PREVISCAN [Concomitant]
     Active Substance: FLUINDIONE
     Indication: PRODUCT USED FOR UNKNOWN INDICATION
     Dosage: UNK
  7. ZELITREX [Concomitant]
     Active Substance: VALACYCLOVIR HYDROCHLORIDE
     Indication: PRODUCT USED FOR UNKNOWN INDICATION
     Dosage: UNK
  8. IRBESARTAN. [Concomitant]
     Active Substance: IRBESARTAN
     Indication: PRODUCT USED FOR UNKNOWN INDICATION
     Dosage: UNK
  9. PREDNISONE. [Concomitant]
     Active Substance: PREDNISONE
     Indication: HIGH GRADE B-CELL LYMPHOMA BURKITT-LIKE LYMPHOMA RECURRENT
     Dosage: 120 MG, QD
     Route: 042
     Dates: start: 20170517, end: 20170522
  10. METHOTREXATE (METHOTREXATE SODIUM) [Suspect]
     Active Substance: METHOTREXATE SODIUM
     Indication: HIGH GRADE B-CELL LYMPHOMA BURKITT-LIKE LYMPHOMA RECURRENT
     Dosage: 3000 MG, ONCE
     Route: 042
     Dates: start: 20170518, end: 20170518
  11. TAHOR [Concomitant]
     Active Substance: ATORVASTATIN CALCIUM
     Indication: PRODUCT USED FOR UNKNOWN INDICATION
     Dosage: UNK
  12. COAPROVEL [Concomitant]
     Active Substance: HYDROCHLOROTHIAZIDE\IRBESARTAN
     Indication: PRODUCT USED FOR UNKNOWN INDICATION
     Dosage: UNK
  13. KARDEGIC [Concomitant]
     Active Substance: ASPIRIN LYSINE
     Indication: PRODUCT USED FOR UNKNOWN INDICATION
     Dosage: UNK

REACTIONS (4)
  - Hyperkalaemia [Recovered/Resolved]
  - Anaemia [Not Recovered/Not Resolved]
  - Thrombocytopenia [Not Recovered/Not Resolved]
  - Acute kidney injury [Recovered/Resolved]

NARRATIVE: CASE EVENT DATE: 20170519
